FAERS Safety Report 10419524 (Version 1)
Quarter: 2014Q3

REPORT INFORMATION
  Report Type: Spontaneous
  Country: FR (occurrence: FR)
  Receive Date: 20140829
  Receipt Date: 20140829
  Transmission Date: 20150326
  Serious: Yes (Hospitalization)
  Sender: FDA-Public Use
  Company Number: FR-PFIZER INC-2014236488

PATIENT
  Age: 66 Year
  Sex: Male

DRUGS (5)
  1. ODRIK [Concomitant]
     Active Substance: TRANDOLAPRIL
     Dosage: 1 DF, 1X/DAY
     Route: 048
  2. DOLIPRANE [Concomitant]
     Active Substance: ACETAMINOPHEN
     Dosage: 1 G, UNK
     Route: 048
  3. TAHOR [Suspect]
     Active Substance: ATORVASTATIN CALCIUM
     Indication: DYSLIPIDAEMIA
     Dosage: 40 MG, 1X/DAY
     Route: 048
     Dates: start: 2008, end: 20140307
  4. METFORMIN [Concomitant]
     Active Substance: METFORMIN HYDROCHLORIDE
     Indication: DIABETES MELLITUS
     Dosage: 850 MG, 3X/DAY
     Route: 048
  5. KARDEGIC [Concomitant]
     Active Substance: ASPIRIN LYSINE
     Dosage: 160 MG, 1X/DAY
     Route: 048
     Dates: start: 2008, end: 20140307

REACTIONS (3)
  - Rhabdomyolysis [Unknown]
  - Weight decreased [Unknown]
  - Myositis [Recovering/Resolving]

NARRATIVE: CASE EVENT DATE: 201403
